FAERS Safety Report 15956943 (Version 1)
Quarter: 2019Q1

REPORT INFORMATION
  Report Type: Report from Study
  Country: None (occurrence: ES)
  Receive Date: 20190213
  Receipt Date: 20190213
  Transmission Date: 20190417
  Serious: Yes (Other)
  Sender: FDA-Public Use
  Company Number: ES-BIOVITRUM-2019ES0229

PATIENT
  Age: 66 Year
  Sex: Male

DRUGS (1)
  1. KINERET [Suspect]
     Active Substance: ANAKINRA
     Indication: STILL^S DISEASE
     Dosage: 100 MG/ 1 D?A
     Route: 058
     Dates: start: 20161216

REACTIONS (1)
  - Pseudomonas bronchitis [Recovered/Resolved]

NARRATIVE: CASE EVENT DATE: 20180108
